FAERS Safety Report 23595306 (Version 2)
Quarter: 2024Q1

REPORT INFORMATION
  Report Type: Report from Study
  Country: CA (occurrence: CA)
  Receive Date: 20240305
  Receipt Date: 20240318
  Transmission Date: 20240409
  Serious: Yes (Hospitalization, Other)
  Sender: FDA-Public Use
  Company Number: CA-GLAXOSMITHKLINE-CA2023106219

PATIENT

DRUGS (1)
  1. MEPOLIZUMAB [Suspect]
     Active Substance: MEPOLIZUMAB
     Indication: Asthma
     Dosage: 100 MG, Q4W
     Route: 058
     Dates: start: 20210623

REACTIONS (5)
  - Abscess intestinal [Unknown]
  - Crohn^s disease [Unknown]
  - Dyspnoea [Unknown]
  - Asthma [Unknown]
  - Insomnia [Not Recovered/Not Resolved]
